FAERS Safety Report 6688993-3 (Version None)
Quarter: 2010Q2

REPORT INFORMATION
  Report Type: 
  Country: None (occurrence: None)
  Receive Date: 20100420
  Receipt Date: 20100408
  Transmission Date: 20101027
  Serious: Yes (Other)
  Sender: FDA-Public Use
  Company Number: PHHY2010US22307

PATIENT
  Sex: Female

DRUGS (14)
  1. RECLAST [Suspect]
     Dosage: UNK
     Dates: start: 20100211
  2. FIORICET [Suspect]
  3. LORTAB [Suspect]
  4. TYLENOL-500 [Suspect]
  5. ELAVIL [Suspect]
     Dosage: 50 MG
  6. PREVACID [Concomitant]
  7. PRILOSEC [Concomitant]
  8. LIPITOR [Concomitant]
  9. ZETIA [Concomitant]
  10. PAXIL [Concomitant]
  11. DRAMAMINE [Concomitant]
  12. CALCIUM WITH VITAMIN D [Concomitant]
  13. ESTRACE [Concomitant]
     Dosage: UNK
  14. AVAPRO [Concomitant]

REACTIONS (10)
  - BONE DISORDER [None]
  - DIZZINESS [None]
  - HEADACHE [None]
  - HYPOAESTHESIA [None]
  - INSOMNIA [None]
  - NECK PAIN [None]
  - PAIN [None]
  - PAIN IN EXTREMITY [None]
  - PRURITUS [None]
  - PYREXIA [None]
